FAERS Safety Report 6509086-1 (Version None)
Quarter: 2009Q4

REPORT INFORMATION
  Report Type: 
  Country: None (occurrence: None)
  Receive Date: 20091218
  Receipt Date: 20091218
  Transmission Date: 20100525
  Serious: Yes (Other)
  Sender: FDA-Public Use
  Company Number: None

PATIENT
  Age: 14 Year
  Sex: Male
  Weight: 72.5755 kg

DRUGS (1)
  1. DORYX [Suspect]
     Indication: ACNE
     Dates: start: 20091212, end: 20091215

REACTIONS (4)
  - BURNING SENSATION [None]
  - EYE SWELLING [None]
  - HYPERSENSITIVITY [None]
  - SKIN EXFOLIATION [None]
